FAERS Safety Report 10168803 (Version 1)
Quarter: 2014Q2

REPORT INFORMATION
  Report Type: Spontaneous
  Country: GB (occurrence: None)
  Receive Date: 20140509
  Receipt Date: 20140509
  Transmission Date: 20141212
  Serious: Yes (Disabling, Other)
  Sender: FDA-Public Use
  Company Number: AUR-APL-2014-05329

PATIENT
  Age: 41 Year
  Sex: Male
  Weight: 82.55 kg

DRUGS (1)
  1. FINASTERIDE (FINASTERIDE) [Suspect]
     Indication: PRODUCT USED FOR UNKNOWN INDICATION
     Route: 048
     Dates: start: 20100801, end: 20131023

REACTIONS (6)
  - Nerve injury [None]
  - Mydriasis [None]
  - Dizziness [None]
  - Balance disorder [None]
  - Multiple sclerosis [None]
  - Vestibular disorder [None]
